APPROVED DRUG PRODUCT: TICLID
Active Ingredient: TICLOPIDINE HYDROCHLORIDE
Strength: 250MG
Dosage Form/Route: TABLET;ORAL
Application: N019979 | Product #002
Applicant: ROCHE PALO ALTO LLC
Approved: Oct 31, 1991 | RLD: No | RS: No | Type: DISCN